FAERS Safety Report 18411842 (Version 1)
Quarter: 2020Q4

REPORT INFORMATION
  Report Type: Spontaneous
  Country: US (occurrence: US)
  Receive Date: 20201021
  Receipt Date: 20201021
  Transmission Date: 20210114
  Serious: No
  Sender: FDA-Public Use
  Company Number: US-JNJFOC-20201025484

PATIENT
  Age: 64 Year
  Sex: Male
  Weight: 97.61 kg

DRUGS (2)
  1. TREMFYA [Suspect]
     Active Substance: GUSELKUMAB
     Indication: PSORIATIC ARTHROPATHY
     Route: 065
  2. TREMFYA [Suspect]
     Active Substance: GUSELKUMAB

REACTIONS (3)
  - Trigger finger [Unknown]
  - Gout [Unknown]
  - Psoriasis [Unknown]

NARRATIVE: CASE EVENT DATE: 201907
